FAERS Safety Report 7085858-2 (Version None)
Quarter: 2010Q4

REPORT INFORMATION
  Report Type: 
  Country: None (occurrence: None)
  Receive Date: 20101105
  Receipt Date: 20101026
  Transmission Date: 20110411
  Serious: Yes (Other)
  Sender: FDA-Public Use
  Company Number: US-ROCHE-737407

PATIENT
  Age: 63 Year
  Sex: Female

DRUGS (2)
  1. AVASTIN [Suspect]
     Dosage: ROUTE, DOSE FORM AND FREQUENCY NOT PROVIDED.
     Route: 065
  2. TAXOL [Suspect]
     Dosage: ROUTE, DOSE FORM AND FREQUENCY NOT PROVIDED.
     Route: 065

REACTIONS (1)
  - MYELODYSPLASTIC SYNDROME [None]
